FAERS Safety Report 13256470 (Version 2)
Quarter: 2017Q1

REPORT INFORMATION
  Report Type: Spontaneous
  Country: US (occurrence: US)
  Receive Date: 20170221
  Receipt Date: 20170303
  Transmission Date: 20170428
  Serious: Yes (Hospitalization, Other)
  Sender: FDA-Public Use
  Company Number: US-IPSEN BIOPHARMACEUTICALS, INC.-2017-01340

PATIENT
  Sex: Male

DRUGS (6)
  1. SUTENT [Suspect]
     Active Substance: SUNITINIB MALATE
     Indication: NEUROENDOCRINE TUMOUR
     Dates: start: 20161128
  2. AFINITOR [Suspect]
     Active Substance: EVEROLIMUS
  3. AFINITOR [Suspect]
     Active Substance: EVEROLIMUS
  4. SOMATULINE [Suspect]
     Active Substance: LANREOTIDE ACETATE
     Indication: NEUROENDOCRINE TUMOUR
     Dosage: NOT REPORTED
     Route: 065
  5. AFINITOR [Suspect]
     Active Substance: EVEROLIMUS
     Indication: NEUROENDOCRINE TUMOUR
     Dates: start: 2014
  6. SUTENT [Suspect]
     Active Substance: SUNITINIB MALATE

REACTIONS (5)
  - Ejection fraction decreased [Unknown]
  - Microcytic anaemia [Recovering/Resolving]
  - Asthenia [Unknown]
  - Abdominal pain [Recovered/Resolved]
  - Haemobilia [Unknown]

NARRATIVE: CASE EVENT DATE: 2016
